FAERS Safety Report 9626592 (Version 2)
Quarter: 2015Q1

REPORT INFORMATION
  Report Type: Spontaneous
  Country: US (occurrence: US)
  Receive Date: 20131016
  Receipt Date: 20150224
  Transmission Date: 20150721
  Serious: Yes (Hospitalization, Disabling, Other)
  Sender: FDA-Public Use
  Company Number: US-MERCK-1310USA006759

PATIENT
  Sex: Female
  Weight: 116 kg

DRUGS (3)
  1. PREDNISONE. [Concomitant]
     Active Substance: PREDNISONE
     Indication: SYSTEMIC LUPUS ERYTHEMATOSUS
     Dosage: UNK
     Dates: start: 1985
  2. PLAQUENIL [Concomitant]
     Active Substance: HYDROXYCHLOROQUINE SULFATE
     Indication: SYSTEMIC LUPUS ERYTHEMATOSUS
     Dosage: UNK
     Dates: start: 1985
  3. JANUVIA [Suspect]
     Active Substance: SITAGLIPTIN PHOSPHATE
     Indication: TYPE 2 DIABETES MELLITUS
     Dosage: 100 MG, BID
     Route: 048
     Dates: start: 200807, end: 201108

REACTIONS (27)
  - Splenic abscess [Unknown]
  - Pleural effusion [Unknown]
  - Empyema [Unknown]
  - Adenocarcinoma pancreas [Unknown]
  - Mood swings [Unknown]
  - Splenic vein thrombosis [Unknown]
  - Streptococcal bacteraemia [Unknown]
  - Nerve block [Unknown]
  - Vomiting [Unknown]
  - Anxiety [Unknown]
  - Bundle branch block right [Recovered/Resolved]
  - Electrocardiogram ST segment depression [Recovered/Resolved]
  - Oedema peripheral [Unknown]
  - Constipation [Unknown]
  - Asthenia [Unknown]
  - Oesophageal obstruction [Unknown]
  - Arteriosclerosis [Unknown]
  - Nausea [Unknown]
  - Sinus tachycardia [Recovered/Resolved]
  - Malnutrition [Unknown]
  - Abdominal hernia [Unknown]
  - Pleural infection [Unknown]
  - Pancreatitis acute [Unknown]
  - Depression [Unknown]
  - Bundle branch block left [Recovered/Resolved]
  - Granuloma [Unknown]
  - Oesophageal achalasia [Unknown]

NARRATIVE: CASE EVENT DATE: 201108
